FAERS Safety Report 13957699 (Version 1)
Quarter: 2017Q3

REPORT INFORMATION
  Report Type: Spontaneous
  Country: US (occurrence: US)
  Receive Date: 20170911
  Receipt Date: 20170911
  Transmission Date: 20171128
  Serious: Yes (Death, Other)
  Sender: FDA-Public Use
  Company Number: US-TEVA-804639USA

PATIENT
  Age: 66 Year
  Sex: Female

DRUGS (7)
  1. RISPERDAL [Concomitant]
     Active Substance: RISPERIDONE
     Route: 065
  2. LISINOPRIL, HYDROCHLOROTHIAZIDE [Concomitant]
     Active Substance: HYDROCHLOROTHIAZIDE\LISINOPRIL
     Route: 065
  3. METOPROLOL [Concomitant]
     Route: 065
  4. AMLODIPINE [Concomitant]
     Route: 065
  5. METFORMIN [Suspect]
     Active Substance: METFORMIN HYDROCHLORIDE
     Route: 065
  6. GABAPENTIN [Concomitant]
     Route: 065
  7. FLUVASTATIN [Concomitant]
     Active Substance: FLUVASTATIN SODIUM
     Route: 065

REACTIONS (3)
  - Shock [Fatal]
  - Cardiac arrest [Fatal]
  - Lactic acidosis [Fatal]
